FAERS Safety Report 7285402-0 (Version None)
Quarter: 2011Q1

REPORT INFORMATION
  Report Type: 
  Country: None (occurrence: None)
  Receive Date: 20110210
  Receipt Date: 20110127
  Transmission Date: 20110831
  Serious: Yes (Hospitalization)
  Sender: FDA-Public Use
  Company Number: JP-BAYER-201015050BYL

PATIENT
  Sex: Male
  Weight: 70 kg

DRUGS (8)
  1. LOXOPROFEN SODIUM [Concomitant]
  2. PURSENNID [Concomitant]
     Dosage: 24 MG (DAILY DOSE), , ORAL
     Route: 048
  3. LOXOPROFEN SODIUM [Concomitant]
     Indication: HEADACHE
     Route: 048
  4. UREPEARL [Concomitant]
     Route: 061
  5. SORAFENIB (RAF KINASE INHIBITOR) [Suspect]
     Dosage: 400 MG, UNK
     Dates: start: 20100928
  6. SORAFENIB (RAF KINASE INHIBITOR) [Suspect]
     Indication: HEPATIC NEOPLASM MALIGNANT
     Dosage: 400 MG, BID
     Route: 048
     Dates: start: 20100714
  7. ORADOL [Concomitant]
     Route: 049
  8. LANSOPRAZOLE [Concomitant]
     Dosage: 15 MG (DAILY DOSE), , ORAL
     Route: 048

REACTIONS (4)
  - ATRIAL FIBRILLATION [None]
  - ALOPECIA [None]
  - RASH [None]
  - HYPERTHYROIDISM [None]
